FAERS Safety Report 10145260 (Version 1)
Quarter: 2014Q2

REPORT INFORMATION
  Report Type: Spontaneous
  Country: US (occurrence: US)
  Receive Date: 20140501
  Receipt Date: 20140501
  Transmission Date: 20141212
  Serious: No
  Sender: FDA-Public Use
  Company Number: US-BIOGENIDEC-2014BI037385

PATIENT
  Sex: Female

DRUGS (5)
  1. TECFIDERA [Suspect]
     Indication: MULTIPLE SCLEROSIS
     Route: 048
     Dates: start: 201403
  2. TECFIDERA [Suspect]
     Indication: MULTIPLE SCLEROSIS
     Route: 048
     Dates: start: 201403
  3. CVS VITAMIN B12 [Concomitant]
  4. CVS VITAMIN D [Concomitant]
  5. LORAZEPAM [Concomitant]

REACTIONS (4)
  - Fatigue [Unknown]
  - Depression [Unknown]
  - Cognitive disorder [Unknown]
  - Abdominal discomfort [Unknown]
